FAERS Safety Report 24586040 (Version 1)
Quarter: 2024Q4

REPORT INFORMATION
  Report Type: Other
  Country: US (occurrence: US)
  Receive Date: 20241106
  Receipt Date: 20241106
  Transmission Date: 20250114
  Serious: No
  Sender: TRAVERE THERAPEUTICS
  Company Number: US-TRAVERE-2024TVT00975

PATIENT
  Sex: Female

DRUGS (1)
  1. FILSPARI [Suspect]
     Active Substance: SPARSENTAN
     Indication: IgA nephropathy
     Dosage: DOSE WAS INCREASED TO 400 MG.
     Route: 048
     Dates: start: 20240923

REACTIONS (3)
  - Fatigue [Unknown]
  - Somnolence [Unknown]
  - Blood pressure fluctuation [Unknown]
